FAERS Safety Report 9999671 (Version 1)
Quarter: 2014Q1

REPORT INFORMATION
  Report Type: Spontaneous
  Country: US (occurrence: US)
  Receive Date: 20140312
  Receipt Date: 20140312
  Transmission Date: 20141002
  Serious: No
  Sender: FDA-Public Use
  Company Number: US-009507513-1403USA002272

PATIENT
  Age: 9 Year
  Sex: Male

DRUGS (5)
  1. SINGULAIR [Suspect]
     Indication: HYPERSENSITIVITY
     Dosage: 5 MG, QD
     Route: 048
     Dates: start: 20131204
  2. ZYRTEC [Concomitant]
  3. NEXIUM [Concomitant]
  4. BENADRYL [Concomitant]
  5. VITAMIN D (UNSPECIFIED) [Concomitant]

REACTIONS (1)
  - Eosinophilic oesophagitis [Not Recovered/Not Resolved]
